FAERS Safety Report 7809910-6 (Version None)
Quarter: 2011Q4

REPORT INFORMATION
  Report Type: 
  Country: None (occurrence: None)
  Receive Date: 20111012
  Receipt Date: 20110930
  Transmission Date: 20120403
  Serious: Yes (Other)
  Sender: FDA-Public Use
  Company Number: JP-ELI_LILLY_AND_COMPANY-JP200903002183

PATIENT
  Sex: Female

DRUGS (2)
  1. HUMULIN R [Suspect]
  2. HUMULIN R [Suspect]
     Indication: DIABETES MELLITUS
     Route: 062

REACTIONS (3)
  - DRUG ADMINISTERED IN WRONG DEVICE [None]
  - HYPOGLYCAEMIA [None]
  - BLOOD GLUCOSE INCREASED [None]
